FAERS Safety Report 8088599-8 (Version None)
Quarter: 2012Q1

REPORT INFORMATION
  Report Type: 
  Country: None (occurrence: None)
  Receive Date: 20120128
  Receipt Date: 20110606
  Transmission Date: 20120608
  Serious: No
  Sender: FDA-Public Use
  Company Number: US-ABBOTT-11P-163-0723328-00

PATIENT
  Sex: Female
  Weight: 113.5 kg

DRUGS (16)
  1. SYNTHROID [Concomitant]
     Indication: HYPOTHYROIDISM
  2. LOVAZA [Concomitant]
     Indication: SUPPLEMENTATION THERAPY
  3. INDERAL [Concomitant]
     Indication: HYPERTENSION
  4. ASPIRIN [Concomitant]
     Indication: PRODUCT USED FOR UNKNOWN INDICATION
  5. OXYBUTYNIN [Concomitant]
     Indication: URINARY INCONTINENCE
  6. FISH OIL [Concomitant]
     Indication: SUPPLEMENTATION THERAPY
  7. PREDNISONE TAB [Concomitant]
     Indication: RHEUMATOID ARTHRITIS
  8. GLUCOPHAGE [Concomitant]
     Indication: TYPE 2 DIABETES MELLITUS
     Route: 048
  9. ARAVA [Concomitant]
     Indication: RHEUMATOID ARTHRITIS
  10. CYMBALTA [Concomitant]
     Indication: DEPRESSION
  11. OTC IRON [Concomitant]
     Indication: MINERAL SUPPLEMENTATION
  12. FOLIC ACID [Concomitant]
     Indication: VITAMIN SUPPLEMENTATION
  13. PRILOSEC [Concomitant]
     Indication: GASTROOESOPHAGEAL REFLUX DISEASE
  14. CALCIUM +D [Concomitant]
     Indication: MINERAL SUPPLEMENTATION
  15. HUMIRA [Suspect]
     Indication: RHEUMATOID ARTHRITIS
     Route: 058
     Dates: start: 20101001, end: 20110516
  16. MULTI-VITAMIN [Concomitant]
     Indication: VITAMIN SUPPLEMENTATION

REACTIONS (19)
  - THROMBOPHLEBITIS SUPERFICIAL [None]
  - ARTHRALGIA [None]
  - VOMITING [None]
  - SKIN WARM [None]
  - JOINT SWELLING [None]
  - FATIGUE [None]
  - MUSCULOSKELETAL STIFFNESS [None]
  - DIZZINESS [None]
  - NAUSEA [None]
  - PNEUMONIA [None]
  - ERYTHEMA [None]
  - VARICOSE VEIN RUPTURED [None]
  - GAIT DISTURBANCE [None]
  - PHARYNGITIS STREPTOCOCCAL [None]
  - LABYRINTHITIS [None]
  - FALL [None]
  - CHEST DISCOMFORT [None]
  - CONTUSION [None]
  - NODULE [None]
